FAERS Safety Report 23548324 (Version 7)
Quarter: 2024Q2

REPORT INFORMATION
  Report Type: Spontaneous
  Country: US (occurrence: US)
  Receive Date: 20240221
  Receipt Date: 20240613
  Transmission Date: 20240715
  Serious: No
  Sender: FDA-Public Use
  Company Number: US-PFIZER INC-PV202400015857

PATIENT
  Age: 66 Year
  Sex: Male
  Weight: 79.365 kg

DRUGS (2)
  1. GENOTROPIN [Suspect]
     Active Substance: SOMATROPIN
     Dosage: 0.4 MG
  2. GENOTROPIN [Suspect]
     Active Substance: SOMATROPIN
     Dosage: 4 (AS REPORTED), DAILY (INJECTION)

REACTIONS (2)
  - Device use issue [Unknown]
  - Drug dose omission by device [Unknown]
